FAERS Safety Report 21825538 (Version 2)
Quarter: 2023Q2

REPORT INFORMATION
  Report Type: Report from Study
  Country: US (occurrence: US)
  Receive Date: 20230105
  Receipt Date: 20230407
  Transmission Date: 20230721
  Serious: Yes (Hospitalization, Other)
  Sender: FDA-Public Use
  Company Number: US-ACADIA PHARMACEUTICALS INC.-ACA-2022-PIM-004528

PATIENT
  Sex: Female

DRUGS (11)
  1. NUPLAZID [Suspect]
     Active Substance: PIMAVANSERIN TARTRATE
     Indication: Parkinson^s disease psychosis
     Dosage: 34 MILLIGRAM, QD
     Route: 048
  2. NUPLAZID [Suspect]
     Active Substance: PIMAVANSERIN TARTRATE
     Dosage: 34 MILLIGRAM, QD
     Route: 048
     Dates: start: 20230203
  3. ACETAMINOPHEN [Concomitant]
     Active Substance: ACETAMINOPHEN
     Dosage: 650 MILLIGRAM
  4. BRIMONIDINE [Concomitant]
     Active Substance: BRIMONIDINE TARTRATE
     Dosage: 0.2 %
     Route: 047
  5. CARBIDOPA\LEVODOPA [Concomitant]
     Active Substance: CARBIDOPA\LEVODOPA
     Dosage: 25-100 MG
  6. CITALOPRAM [Concomitant]
     Active Substance: CITALOPRAM HYDROBROMIDE
     Dosage: 10 MILLIGRAM
  7. EUCERIN [SALICYLIC ACID] [Concomitant]
  8. FERROUS SULFATE [Concomitant]
     Active Substance: FERROUS SULFATE
     Dosage: 325 MILLIGRAM
  9. OLANZAPINE [Concomitant]
     Active Substance: OLANZAPINE
     Dosage: 5 MILLIGRAM
  10. PILOCARPINE [Concomitant]
     Active Substance: PILOCARPINE
     Dosage: 1 %
     Route: 047
  11. ZINC OXIDE [Concomitant]
     Active Substance: ZINC OXIDE
     Dosage: 20 %

REACTIONS (2)
  - Hip fracture [Unknown]
  - Fall [Recovered/Resolved]
